FAERS Safety Report 11105621 (Version 1)
Quarter: 2015Q2

REPORT INFORMATION
  Report Type: Spontaneous
  Country: US (occurrence: None)
  Receive Date: 20150508
  Receipt Date: 20150508
  Transmission Date: 20150821
  Serious: No
  Sender: FDA-Public Use
  Company Number: None

PATIENT
  Age: 87 Year
  Sex: Male
  Weight: 74.84 kg

DRUGS (3)
  1. ARMOUR THYROID [Concomitant]
     Active Substance: THYROID, PORCINE\THYROID, UNSPECIFIED
  2. DEXILANT [Suspect]
     Active Substance: DEXLANSOPRAZOLE
     Indication: DYSPEPSIA
     Route: 048
     Dates: start: 20150206, end: 20150311
  3. MULTI VITAMIN + MINERAL SUPPLEMENTS [Concomitant]

REACTIONS (12)
  - Oropharyngeal pain [None]
  - Rhinorrhoea [None]
  - Visual impairment [None]
  - Eye discharge [None]
  - Dysphonia [None]
  - Speech disorder [None]
  - Pharyngeal oedema [None]
  - Eye swelling [None]
  - Hearing impaired [None]
  - Productive cough [None]
  - Upper respiratory tract infection [None]
  - Ear congestion [None]

NARRATIVE: CASE EVENT DATE: 20150311
